FAERS Safety Report 21141810 (Version 1)
Quarter: 2022Q3

REPORT INFORMATION
  Report Type: Spontaneous
  Country: US (occurrence: None)
  Receive Date: 20220727
  Receipt Date: 20220727
  Transmission Date: 20221026
  Serious: No
  Sender: FDA-Public Use
  Company Number: None

PATIENT
  Age: 32 Year
  Sex: Female
  Weight: 160.65 kg

DRUGS (18)
  1. DEPAKOTE [Suspect]
     Active Substance: DIVALPROEX SODIUM
     Indication: Dissociative identity disorder
  2. DEPAKOTE [Suspect]
     Active Substance: DIVALPROEX SODIUM
     Indication: Schizophrenia
  3. HALOPERIDOL [Suspect]
     Active Substance: HALOPERIDOL
     Indication: Dissociative identity disorder
  4. HALOPERIDOL [Suspect]
     Active Substance: HALOPERIDOL
     Indication: Schizophrenia
  5. Letchin [Concomitant]
  6. Vitamins B [Concomitant]
  7. VITAMIN D [Concomitant]
     Active Substance: VITAMIN D NOS
  8. VITAMIN A [Concomitant]
     Active Substance: VITAMIN A
  9. VITAMIN C [Concomitant]
     Active Substance: ASCORBIC ACID
  10. Super Greens Supplement [Concomitant]
  11. HERBALS [Concomitant]
     Active Substance: HERBALS
  12. FISH OIL [Concomitant]
     Active Substance: FISH OIL
  13. CALCIUM [Concomitant]
     Active Substance: CALCIUM
  14. ZINC [Concomitant]
     Active Substance: ZINC
  15. HERBALS [Concomitant]
     Active Substance: HERBALS
  16. APPLE CIDER VINEGAR [Concomitant]
     Active Substance: APPLE CIDER VINEGAR
  17. BENADRYL [Concomitant]
     Active Substance: DIPHENHYDRAMINE HYDROCHLORIDE
  18. CLARITIN [Concomitant]
     Active Substance: LORATADINE

REACTIONS (18)
  - Feeling abnormal [None]
  - Dyskinesia [None]
  - Muscle spasms [None]
  - Chest discomfort [None]
  - Chest pain [None]
  - Dyspnoea [None]
  - Stomatitis [None]
  - Oropharyngeal pain [None]
  - Hyperhidrosis [None]
  - Feeling hot [None]
  - Confusional state [None]
  - Menstruation irregular [None]
  - Petit mal epilepsy [None]
  - Vomiting [None]
  - Abortion spontaneous [None]
  - Pregnancy [None]
  - Exposure during pregnancy [None]
  - Prescribed overdose [None]

NARRATIVE: CASE EVENT DATE: 20220727
